FAERS Safety Report 7990228-6 (Version None)
Quarter: 2011Q4

REPORT INFORMATION
  Report Type: 
  Country: None (occurrence: None)
  Receive Date: 20111219
  Receipt Date: 20111207
  Transmission Date: 20120403
  Serious: Yes (Hospitalization)
  Sender: FDA-Public Use
  Company Number: ES-MPIJNJ-2011-06340

PATIENT

DRUGS (7)
  1. VELCADE [Suspect]
     Indication: MULTIPLE MYELOMA
     Dosage: 2.1 MG, CYCLIC
     Route: 065
     Dates: start: 20110808, end: 20111114
  2. REVLIMID [Suspect]
     Indication: MULTIPLE MYELOMA
     Dosage: 5 MG, CYCLIC
     Route: 065
     Dates: start: 20110711, end: 20111204
  3. PREDNISONE TAB [Suspect]
     Indication: MULTIPLE MYELOMA
     Dosage: 100 MG, CYCLIC
     Route: 065
     Dates: start: 20110808, end: 20111027
  4. DIGOXIN [Concomitant]
     Indication: HYPERTENSION
  5. MELPHALAN HYDROCHLORIDE [Suspect]
     Indication: MULTIPLE MYELOMA
     Dosage: 15 MG, CYCLIC
     Route: 065
     Dates: start: 20110808, end: 20111027
  6. MICARDIS HCT [Concomitant]
     Indication: HYPERTENSION
  7. DEXAMETHASONE [Suspect]
     Indication: MULTIPLE MYELOMA
     Dosage: 20 MG, CYCLIC
     Route: 065
     Dates: start: 20110711, end: 20111128

REACTIONS (1)
  - TOXICITY TO VARIOUS AGENTS [None]
